FAERS Safety Report 5506488-7 (Version None)
Quarter: 2007Q4

REPORT INFORMATION
  Report Type: 
  Country: None (occurrence: None)
  Receive Date: 20071101
  Receipt Date: 20071019
  Transmission Date: 20080405
  Serious: Yes (Hospitalization, Other)
  Sender: FDA-Public Use
  Company Number: 2007333464

PATIENT
  Age: 76 Year
  Sex: Female

DRUGS (4)
  1. CALCIUM CARBONATE (CALCIUM CARBONATE) [Suspect]
     Indication: DYSPEPSIA
     Dosage: 5.5 GRAMS DAILY, ORAL
     Route: 048
  2. IBUPROFEN [Suspect]
     Indication: OSTEOARTHRITIS
     Dosage: OSTEOARTHRITIS
  3. SALBUTAMOL (SALBUTAMOL) [Concomitant]
  4. CALCIUM CHANNEL BLOCKERS (CALCIUM CHANNEL BLOCKERS) [Concomitant]

REACTIONS (7)
  - CHANGE OF BOWEL HABIT [None]
  - CONSTIPATION [None]
  - DIARRHOEA [None]
  - HYPERCALCAEMIA [None]
  - NOCTURIA [None]
  - POLYDIPSIA [None]
  - POLYURIA [None]
